FAERS Safety Report 11345208 (Version 1)
Quarter: 2015Q3

REPORT INFORMATION
  Report Type: Report from Study
  Country: US (occurrence: US)
  Receive Date: 20150806
  Receipt Date: 20150806
  Transmission Date: 20151125
  Serious: No
  Sender: FDA-Public Use
  Company Number: US-ABBVIE-15P-163-1415334-00

PATIENT
  Age: 58 Year
  Sex: Male

DRUGS (1)
  1. VIEKIRA PAK [Suspect]
     Active Substance: DASABUVIR\OMBITASVIR\PARITAPREVIR\RITONAVIR
     Indication: HEPATITIS C
     Dosage: 12.5-75-20-250MG TABLET PACK, DAILY
     Route: 048
     Dates: start: 20150518

REACTIONS (1)
  - Headache [Recovering/Resolving]

NARRATIVE: CASE EVENT DATE: 20150604
